FAERS Safety Report 17988367 (Version 1)
Quarter: 2020Q3

REPORT INFORMATION
  Report Type: Spontaneous
  Country: US (occurrence: US)
  Receive Date: 20200706
  Receipt Date: 20200706
  Transmission Date: 20201103
  Serious: Yes (Hospitalization)
  Sender: FDA-Public Use
  Company Number: None

PATIENT
  Age: 9 Year
  Sex: Male

DRUGS (1)
  1. UDENYCA [Suspect]
     Active Substance: PEGFILGRASTIM-CBQV
     Indication: SOFT TISSUE SARCOMA
     Dosage: ?          OTHER ROUTE:UNDER THE SKIN?

REACTIONS (2)
  - Full blood count decreased [None]
  - Pyrexia [None]

NARRATIVE: CASE EVENT DATE: 20190628
